FAERS Safety Report 6666851-8 (Version None)
Quarter: 2010Q2

REPORT INFORMATION
  Report Type: 
  Country: None (occurrence: None)
  Receive Date: 20100405
  Receipt Date: 20100330
  Transmission Date: 20101027
  Serious: Yes (Death)
  Sender: FDA-Public Use
  Company Number: US-ASTRAZENECA-2010SE10585

PATIENT
  Age: 59 Year
  Sex: Male

DRUGS (8)
  1. SEROQUEL XR [Suspect]
     Indication: DEPRESSION
     Route: 048
     Dates: start: 20091021, end: 20100217
  2. SEROQUEL XR [Suspect]
     Indication: ANXIETY
     Route: 048
     Dates: start: 20091021, end: 20100217
  3. SEROQUEL XR [Suspect]
     Indication: OBSESSIVE THOUGHTS
     Route: 048
     Dates: start: 20091021, end: 20100217
  4. CELEXA [Concomitant]
  5. LOVOX CR [Concomitant]
     Indication: DEPRESSION
     Route: 048
     Dates: start: 20100210
  6. LOVOX CR [Concomitant]
     Indication: ANXIETY
     Route: 048
     Dates: start: 20100210
  7. LOVOX CR [Concomitant]
     Indication: OBSESSIVE THOUGHTS
     Route: 048
     Dates: start: 20100210
  8. KLONOPIN [Concomitant]
     Indication: ANXIETY
     Route: 048
     Dates: start: 20080101

REACTIONS (1)
  - COMPLETED SUICIDE [None]
